FAERS Safety Report 5123978-X (Version None)
Quarter: 2006Q4

REPORT INFORMATION
  Report Type: 
  Country: None (occurrence: None)
  Receive Date: 20061010
  Receipt Date: 20060929
  Transmission Date: 20070319
  Serious: Yes (Life-Threatening, Hospitalization)
  Sender: FDA-Public Use
  Company Number: NO-JNJFOC-20061000442

PATIENT
  Age: 71 Year
  Sex: Female

DRUGS (7)
  1. REMICADE [Suspect]
     Indication: PSORIATIC ARTHROPATHY
     Route: 042
  2. NAPREN [Suspect]
     Indication: PSORIATIC ARTHROPATHY
     Route: 048
  3. PREDNISOLON [Concomitant]
     Indication: PSORIATIC ARTHROPATHY
     Dosage: 5MG - 60MG
     Route: 048
  4. METHOTREXATE [Concomitant]
     Indication: PSORIATIC ARTHROPATHY
     Route: 048
  5. FOLIC ACID [Concomitant]
     Indication: PSORIATIC ARTHROPATHY
     Route: 048
  6. OXAZEPAM [Concomitant]
     Route: 048
  7. ACETAMINOPHEN [Concomitant]
     Route: 048

REACTIONS (6)
  - ASTHENIA [None]
  - CEREBRAL HAEMORRHAGE [None]
  - HYPOAESTHESIA [None]
  - PERICARDITIS [None]
  - PLEURISY [None]
  - SUBARACHNOID HAEMORRHAGE [None]
